FAERS Safety Report 20574988 (Version 1)
Quarter: 2022Q1

REPORT INFORMATION
  Report Type: Spontaneous
  Country: US (occurrence: None)
  Receive Date: 20220310
  Receipt Date: 20220310
  Transmission Date: 20220423
  Serious: No
  Sender: FDA-Public Use
  Company Number: 2022A069404

PATIENT
  Sex: Male
  Weight: 84.8 kg

DRUGS (1)
  1. ROSUVASTATIN [Suspect]
     Active Substance: ROSUVASTATIN
     Indication: Blood cholesterol
     Route: 048
     Dates: start: 20211115

REACTIONS (3)
  - Blood cholesterol abnormal [Unknown]
  - Hepatic enzyme increased [Unknown]
  - Drug ineffective [Unknown]
